FAERS Safety Report 7771222-7 (Version None)
Quarter: 2011Q3

REPORT INFORMATION
  Report Type: 
  Country: None (occurrence: None)
  Receive Date: 20110922
  Receipt Date: 20101129
  Transmission Date: 20111222
  Serious: No
  Sender: FDA-Public Use
  Company Number: US-ASTRAZENECA-2010SE56709

PATIENT
  Age: 47 Year
  Sex: Male
  Weight: 79.4 kg

DRUGS (4)
  1. PAXIL [Concomitant]
  2. LITHIUM CARBONATE [Concomitant]
  3. SEROQUEL XR [Suspect]
     Indication: BIPOLAR DISORDER
     Route: 048
     Dates: start: 20091101
  4. SEROQUEL XR [Suspect]
     Dosage: 25 MG AS NEEDED
     Route: 048
     Dates: start: 20091101

REACTIONS (3)
  - EYE DISORDER [None]
  - DISTURBANCE IN ATTENTION [None]
  - CORRECTIVE LENS USER [None]
